FAERS Safety Report 17246093 (Version 1)
Quarter: 2020Q1

REPORT INFORMATION
  Report Type: Other
  Country: None (occurrence: CN)
  Receive Date: 20200108
  Receipt Date: 20200108
  Transmission Date: 20200409
  Serious: Yes (Life-Threatening)
  Sender: FDA-Public Use
  Company Number: CN-JIANGSU HENGRUI MEDICINE CO., LTD.-2078652

PATIENT
  Age: 61 Year
  Sex: Female
  Weight: 50 kg

DRUGS (4)
  1. SUFENTANIL CITRATE INJECTION?IDT BIOLOGIKA GMBH [Suspect]
     Active Substance: SUFENTANIL CITRATE
     Route: 050
     Dates: start: 20191210, end: 20191210
  2. DEXMEDETOMIDINE HYDROCHLORIDE INJECTION, 200 MCG/2 ML (100 MCG/ML) SIN [Suspect]
     Active Substance: DEXMEDETOMIDINE HYDROCHLORIDE
     Indication: CLAVICLE FRACTURE
     Route: 050
     Dates: start: 20191210, end: 20191210
  3. ONDANSETRON HYDROCHLORIDE INJECTION?CHENXIN PHARMACEUTICAL CO., LTD [Suspect]
     Active Substance: ONDANSETRON HYDROCHLORIDE
     Route: 050
     Dates: start: 20191210, end: 20191210
  4. COMPOUND SODIUM CHLORIDE INJECTION?SICHUAN KELUN PHARMACEUTICAL CO., L [Concomitant]
     Route: 050
     Dates: start: 20191210, end: 20191210

REACTIONS (4)
  - Respiratory depression [Recovered/Resolved]
  - Urinary incontinence [Recovered/Resolved]
  - Cold sweat [Recovered/Resolved]
  - Loss of consciousness [Recovered/Resolved]

NARRATIVE: CASE EVENT DATE: 20191210
